FAERS Safety Report 9220164 (Version 1)
Quarter: 2013Q2

REPORT INFORMATION
  Report Type: Spontaneous
  Country: US (occurrence: None)
  Receive Date: 20130408
  Receipt Date: 20130408
  Transmission Date: 20140414
  Serious: No
  Sender: FDA-Public Use
  Company Number: None

PATIENT
  Age: 19 Year
  Sex: Female
  Weight: 43.09 kg

DRUGS (1)
  1. MIRENA [Suspect]
     Dates: start: 20100620, end: 20130404

REACTIONS (3)
  - Fungal infection [None]
  - Vulvovaginal discomfort [None]
  - Vulvovaginal swelling [None]
